FAERS Safety Report 24086462 (Version 1)
Quarter: 2024Q3

REPORT INFORMATION
  Report Type: Report from Study
  Country: US (occurrence: US)
  Receive Date: 20240712
  Receipt Date: 20240712
  Transmission Date: 20241017
  Serious: Yes (Death, Hospitalization, Other)
  Sender: ABBVIE
  Company Number: US-ABBVIE-5811583

PATIENT
  Sex: Female

DRUGS (1)
  1. VENCLEXTA [Suspect]
     Active Substance: VENETOCLAX
     Indication: Acute myeloid leukaemia
     Dosage: TAKE 1 TABLET ONCE DAILY ON DAYS 1-21 THEN 7 DAYS OFF,LAST ADMIN DATE- 2024
     Route: 048
     Dates: start: 202405

REACTIONS (6)
  - Death [Fatal]
  - Pyrexia [Recovering/Resolving]
  - Hospice care [Unknown]
  - Hospitalisation [Not Recovered/Not Resolved]
  - Pain [Unknown]
  - Depression [Unknown]

NARRATIVE: CASE EVENT DATE: 20240101
